FAERS Safety Report 25705166 (Version 1)
Quarter: 2025Q3

REPORT INFORMATION
  Report Type: Spontaneous
  Country: US (occurrence: None)
  Receive Date: 20250819
  Receipt Date: 20250819
  Transmission Date: 20251021
  Serious: Yes (Life-Threatening, Hospitalization)
  Sender: FDA-CTU
  Company Number: None

PATIENT
  Age: 82 Year
  Sex: Male

DRUGS (4)
  1. APIXABAN [Suspect]
     Active Substance: APIXABAN
  2. ASPIRIN [Suspect]
     Active Substance: ASPIRIN
  3. APIXABAN [Concomitant]
     Active Substance: APIXABAN
  4. ASPIRIN [Concomitant]
     Active Substance: ASPIRIN

REACTIONS (10)
  - Chronic obstructive pulmonary disease [None]
  - Pulmonary embolism [None]
  - Melaena [None]
  - Haematemesis [None]
  - Duodenal ulcer haemorrhage [None]
  - Thrombosis [None]
  - Hypovolaemic shock [None]
  - Blood creatinine increased [None]
  - Atrial fibrillation [None]
  - Faecal occult blood positive [None]

NARRATIVE: CASE EVENT DATE: 20241205
